FAERS Safety Report 9419935 (Version 1)
Quarter: 2013Q3

REPORT INFORMATION
  Report Type: Spontaneous
  Country: US (occurrence: None)
  Receive Date: 20130724
  Receipt Date: 20130724
  Transmission Date: 20140515
  Serious: No
  Sender: FDA-Public Use
  Company Number: None

PATIENT
  Age: 65 Year
  Sex: Male

DRUGS (1)
  1. MARCAINE [Suspect]
     Indication: NERVE BLOCK
     Dates: start: 20130722, end: 20130722

REACTIONS (1)
  - Drug effect decreased [None]
